FAERS Safety Report 14573292 (Version 1)
Quarter: 2018Q1

REPORT INFORMATION
  Report Type: Spontaneous
  Country: US (occurrence: US)
  Receive Date: 20180226
  Receipt Date: 20180226
  Transmission Date: 20180509
  Serious: Yes (Hospitalization)
  Sender: FDA-Public Use
  Company Number: US-UNITED THERAPEUTICS-UNT-2017-017894

PATIENT
  Age: 76 Year
  Sex: Female
  Weight: 99.77 kg

DRUGS (9)
  1. OPSUMIT [Concomitant]
     Active Substance: MACITENTAN
     Indication: PRODUCT USED FOR UNKNOWN INDICATION
     Route: 065
  2. REMODULIN [Suspect]
     Active Substance: TREPROSTINIL
     Dosage: 0.031 ?G/KG, CONTINUING
     Route: 058
  3. OXYGEN. [Concomitant]
     Active Substance: OXYGEN
     Indication: PRODUCT USED FOR UNKNOWN INDICATION
     Route: 065
  4. REMODULIN [Suspect]
     Active Substance: TREPROSTINIL
     Dosage: 0.030 ?G/KG, CONTINUING
     Route: 058
  5. DILTIAZEM. [Concomitant]
     Active Substance: DILTIAZEM
     Indication: PRODUCT USED FOR UNKNOWN INDICATION
     Route: 065
  6. REMODULIN [Suspect]
     Active Substance: TREPROSTINIL
     Indication: PULMONARY ARTERIAL HYPERTENSION
     Dosage: 0.015 ?G/KG, CONTINUING
     Route: 058
     Dates: start: 20171101
  7. REMODULIN [Suspect]
     Active Substance: TREPROSTINIL
     Dosage: 0.0294 ?G/KG, CONTINUING
     Route: 058
  8. REMODULIN [Suspect]
     Active Substance: TREPROSTINIL
     Dosage: 0.0198 ?G/KG, CONTINUING
     Route: 058
  9. REMODULIN [Suspect]
     Active Substance: TREPROSTINIL
     Dosage: 0.0162 ?G/KG, CONTINUING
     Route: 058

REACTIONS (12)
  - Feeling abnormal [Recovering/Resolving]
  - Pneumonia [Unknown]
  - Insomnia [Unknown]
  - Headache [Unknown]
  - Diarrhoea [Not Recovered/Not Resolved]
  - Dyspnoea [Unknown]
  - Influenza [Unknown]
  - Upper respiratory tract infection [Unknown]
  - Device issue [Unknown]
  - Device dislocation [Unknown]
  - Fatigue [Unknown]
  - Nasopharyngitis [Unknown]

NARRATIVE: CASE EVENT DATE: 2017
